FAERS Safety Report 4382357-3 (Version None)
Quarter: 2004Q2

REPORT INFORMATION
  Report Type: 
  Country: None (occurrence: None)
  Receive Date: 20040615
  Receipt Date: 20040608
  Transmission Date: 20050107
  Serious: Yes (Death, Hospitalization)
  Sender: FDA-Public Use
  Company Number: S04-USA-03110-01

PATIENT
  Age: 95 Year
  Sex: Female

DRUGS (14)
  1. NAMENDA [Suspect]
     Indication: DEMENTIA ALZHEIMER'S TYPE
     Dosage: 5 MG QD PO
     Route: 048
     Dates: start: 20040510, end: 20040516
  2. NAMENDA [Suspect]
     Indication: DEMENTIA ALZHEIMER'S TYPE
     Dosage: 10 MG QD PO
     Route: 048
     Dates: start: 20040517, end: 20040523
  3. NAMENDA [Suspect]
     Indication: DEMENTIA ALZHEIMER'S TYPE
     Dosage: 15 MG QD PO
     Route: 048
     Dates: start: 20040524, end: 20040607
  4. DIGOXIN [Concomitant]
  5. ATENOLOL [Concomitant]
  6. LASIX [Concomitant]
  7. POTASSIUM [Concomitant]
  8. PROTONIX [Concomitant]
  9. ASPIRIN [Concomitant]
  10. CELEXA [Concomitant]
  11. FOSAMAX [Concomitant]
  12. ALLEGRA [Concomitant]
  13. FIBERCON (POLYCARBOPHIL CALCIUM) [Concomitant]
  14. MULTI-VITAMIN [Concomitant]

REACTIONS (3)
  - CEREBROVASCULAR ACCIDENT [None]
  - HEART RATE INCREASED [None]
  - RESPIRATORY DISORDER [None]
